FAERS Safety Report 10210724 (Version 3)
Quarter: 2015Q1

REPORT INFORMATION
  Report Type: Spontaneous
  Country: GB (occurrence: GB)
  Receive Date: 20140602
  Receipt Date: 20140602
  Transmission Date: 20150720
  Serious: Yes (Disabling, Congenital Anomaly)
  Sender: FDA-Public Use
  Company Number: GB-MYLANLABS-2014S1011992

PATIENT
  Sex: Female

DRUGS (11)
  1. CLARITHROMYCIN. [Concomitant]
     Active Substance: CLARITHROMYCIN
     Route: 064
     Dates: start: 20131129
  2. PROCYCLIDINE [Suspect]
     Active Substance: PROCYCLIDINE
     Indication: SCHIZOPHRENIA
     Route: 064
  3. LAMOTRIGINE. [Suspect]
     Active Substance: LAMOTRIGINE
     Indication: SCHIZOPHRENIA
     Route: 064
  4. VENTOLIN [Concomitant]
     Active Substance: ALBUTEROL SULFATE
     Route: 064
     Dates: start: 20131129
  5. CEFALEXIN [Concomitant]
     Active Substance: CEPHALEXIN
     Indication: URINARY TRACT INFECTION
     Route: 064
     Dates: start: 20130827
  6. ZOPICLONE [Suspect]
     Active Substance: ZOPICLONE
     Indication: SCHIZOPHRENIA
     Route: 064
  7. ARIPIPRAZOLE. [Suspect]
     Active Substance: ARIPIPRAZOLE
     Indication: SCHIZOPHRENIA
     Route: 064
  8. NICORETTE [Concomitant]
     Active Substance: NICOTINE
     Route: 064
     Dates: start: 20130808
  9. CYCLIZINE [Concomitant]
     Active Substance: CYCLIZINE
     Route: 064
     Dates: start: 20130902
  10. VITAMIN [Concomitant]
     Active Substance: VITAMINS
     Indication: PREGNANCY
     Dosage: OVER THE COUNTER PREGNANCY VITAMINS AND MINERALS
     Route: 064
  11. MIRTAZAPINE. [Suspect]
     Active Substance: MIRTAZAPINE
     Indication: SCHIZOPHRENIA
     Route: 064

REACTIONS (5)
  - Developmental hip dysplasia [Unknown]
  - Foetal exposure during pregnancy [Unknown]
  - Agitation neonatal [Unknown]
  - Feeding disorder neonatal [Unknown]
  - Muscular weakness [Unknown]

NARRATIVE: CASE EVENT DATE: 201402
